FAERS Safety Report 16801515 (Version 1)
Quarter: 2019Q3

REPORT INFORMATION
  Report Type: Spontaneous
  Country: CA (occurrence: CA)
  Receive Date: 20190912
  Receipt Date: 20190912
  Transmission Date: 20191005
  Serious: Yes (Hospitalization, Other)
  Sender: FDA-Public Use
  Company Number: CA-B.I. PHARMACEUTICALS,INC./RIDGEFIELD-2019-BI-101516

PATIENT
  Age: 68 Year
  Sex: Male

DRUGS (5)
  1. SALBUTAMOL SULFATE [Suspect]
     Active Substance: ALBUTEROL SULFATE
     Indication: PRODUCT USED FOR UNKNOWN INDICATION
     Route: 055
  2. PNEUMOVAX  VACCIN [Concomitant]
     Indication: PNEUMONIA
     Route: 065
  3. PREDNISONE. [Suspect]
     Active Substance: PREDNISONE
     Indication: PRODUCT USED FOR UNKNOWN INDICATION
     Route: 065
  4. INSPIOLTO RESPIMAT [Suspect]
     Active Substance: OLODATEROL HYDROCHLORIDE\TIOTROPIUM BROMIDE MONOHYDRATE
     Indication: PRODUCT USED FOR UNKNOWN INDICATION
     Route: 055
  5. ALVESCO [Suspect]
     Active Substance: CICLESONIDE
     Indication: PRODUCT USED FOR UNKNOWN INDICATION
     Dosage: AEROSOL, METERED DOSE
     Route: 055

REACTIONS (11)
  - Asthma [Unknown]
  - Lung infection [Unknown]
  - Sepsis [Unknown]
  - Wheezing [Unknown]
  - Dyspnoea [Unknown]
  - Pneumonia [Unknown]
  - Clostridium difficile infection [Unknown]
  - Fibroma [Unknown]
  - Gait disturbance [Unknown]
  - Pulmonary mass [Unknown]
  - Loss of personal independence in daily activities [Unknown]
